FAERS Safety Report 9645594 (Version 2)
Quarter: 2013Q4

REPORT INFORMATION
  Report Type: Report from Study
  Country: DK (occurrence: CH)
  Receive Date: 20131025
  Receipt Date: 20131101
  Transmission Date: 20140711
  Serious: No
  Sender: FDA-Public Use
  Company Number: CH-FRI-1000050248

PATIENT
  Age: 25 Year
  Sex: Male

DRUGS (2)
  1. ESCITALOPRAM [Suspect]
     Indication: DEPRESSION
     Dosage: 30 MG
     Route: 048
     Dates: start: 20120321
  2. ESCITALOPRAM [Suspect]
     Indication: ANXIETY DISORDER

REACTIONS (1)
  - Prescribed overdose [Unknown]
